FAERS Safety Report 23084142 (Version 4)
Quarter: 2024Q2

REPORT INFORMATION
  Report Type: Spontaneous
  Country: US (occurrence: US)
  Receive Date: 20231019
  Receipt Date: 20240517
  Transmission Date: 20240715
  Serious: No
  Sender: FDA-Public Use
  Company Number: US-Stemline Therapeutics, Inc.-2023ST003715

PATIENT
  Age: 72 Year
  Sex: Female

DRUGS (4)
  1. ORSERDU [Suspect]
     Active Substance: ELACESTRANT
     Indication: Product used for unknown indication
     Dosage: 345 MG, ONCE A DAY
     Route: 048
     Dates: start: 20230717
  2. ORSERDU [Suspect]
     Active Substance: ELACESTRANT
     Dosage: 344 MG (4 TABLETS) ONCE DAILY
     Route: 048
     Dates: start: 20230717
  3. ORSERDU [Suspect]
     Active Substance: ELACESTRANT
     Dosage: 344 MG (4 TABLETS) ONCE DAILY
     Route: 048
     Dates: start: 20230717
  4. PIQRAY [Suspect]
     Active Substance: ALPELISIB
     Indication: Product used for unknown indication
     Dosage: UNKNKOWN
     Route: 065

REACTIONS (5)
  - Blood glucose increased [Not Recovered/Not Resolved]
  - Hepatic lesion [Unknown]
  - Nausea [Unknown]
  - Rash [Unknown]
  - Blood creatinine increased [Unknown]
